FAERS Safety Report 7590987-0 (Version None)
Quarter: 2011Q3

REPORT INFORMATION
  Report Type: 
  Country: None (occurrence: None)
  Receive Date: 20110705
  Receipt Date: 20110701
  Transmission Date: 20111222
  Serious: Yes (Death)
  Sender: FDA-Public Use
  Company Number: PHFR2011GB04005

PATIENT
  Sex: Male

DRUGS (5)
  1. PERICIAZINE [Concomitant]
     Dosage: UNK
     Route: 065
  2. CLOZAPINE [Suspect]
     Indication: SCHIZOPHRENIA
     Route: 048
     Dates: start: 20090727
  3. PROCYCLIDINE HYDROCHLORIDE 2MG TAB [Concomitant]
     Dosage: UNK
     Route: 065
  4. SIMVASTATIN [Concomitant]
     Dosage: UNK
     Route: 065
  5. MAXOLON [Concomitant]
     Dosage: UNK
     Route: 065

REACTIONS (1)
  - PULMONARY HAEMORRHAGE [None]
